FAERS Safety Report 11738108 (Version 1)
Quarter: 2015Q4

REPORT INFORMATION
  Report Type: Spontaneous
  Country: US (occurrence: US)
  Receive Date: 20151110
  Receipt Date: 20151110
  Transmission Date: 20160304
  Serious: No
  Sender: FDA-Public Use
  Company Number: US-ELI_LILLY_AND_COMPANY-US201204003167

PATIENT
  Sex: Female

DRUGS (3)
  1. FORTEO [Suspect]
     Active Substance: TERIPARATIDE
     Dosage: 20 UG, QD
  2. FORTEO [Suspect]
     Active Substance: TERIPARATIDE
     Indication: OSTEOPOROSIS
     Dosage: 20 UG, QD
     Dates: start: 201008
  3. FORTEO [Suspect]
     Active Substance: TERIPARATIDE
     Dosage: 20 UG, QD
     Dates: end: 20120621

REACTIONS (13)
  - Onychoclasis [Recovered/Resolved]
  - Anxiety [Unknown]
  - Salivary gland enlargement [Not Recovered/Not Resolved]
  - Intentional product misuse [Unknown]
  - Compression fracture [Unknown]
  - Fall [Unknown]
  - Feeling abnormal [Unknown]
  - Ligament sprain [Unknown]
  - Back pain [Unknown]
  - Back disorder [Unknown]
  - Fatigue [Unknown]
  - Nail bed disorder [Recovered/Resolved]
  - Swollen tongue [Unknown]
